FAERS Safety Report 7884670-1 (Version None)
Quarter: 2011Q4

REPORT INFORMATION
  Report Type: 
  Country: None (occurrence: None)
  Receive Date: 20111102
  Receipt Date: 20111027
  Transmission Date: 20120403
  Serious: Yes (Other)
  Sender: FDA-Public Use
  Company Number: US-ABBOTT-11P-163-0869551-00

PATIENT
  Sex: Female
  Weight: 56.75 kg

DRUGS (1)
  1. LUPRON DEPOT [Suspect]
     Indication: ENDOMETRIOSIS
     Dates: start: 20110501

REACTIONS (4)
  - UPPER LIMB FRACTURE [None]
  - LIMB CRUSHING INJURY [None]
  - PAIN [None]
  - ROAD TRAFFIC ACCIDENT [None]
